FAERS Safety Report 4694172-1 (Version None)
Quarter: 2005Q2

REPORT INFORMATION
  Report Type: 
  Country: None (occurrence: None)
  Receive Date: 20050616
  Receipt Date: 20050616
  Transmission Date: 20051028
  Serious: No
  Sender: FDA-Public Use
  Company Number: None

PATIENT
  Age: 33 Year
  Sex: Female
  Weight: 65.7716 kg

DRUGS (1)
  1. TRI-LEVLEN -GENERIC [Suspect]
     Indication: CONTRACEPTION
     Dosage: ONE PO DAILY
     Route: 048

REACTIONS (2)
  - DIARRHOEA [None]
  - NAUSEA [None]
